FAERS Safety Report 23153207 (Version 1)
Quarter: 2023Q4

REPORT INFORMATION
  Report Type: Spontaneous
  Country: US (occurrence: None)
  Receive Date: 20231106
  Receipt Date: 20231106
  Transmission Date: 20240110
  Serious: Yes (Hospitalization, Other)
  Sender: FDA-Public Use
  Company Number: None

PATIENT
  Age: 51 Year
  Sex: Male

DRUGS (2)
  1. COSENTYX [Suspect]
     Active Substance: SECUKINUMAB
     Indication: Psoriasis
     Dosage: OTHER FREQUENCY : WEEKLY/MONTHLY;?
     Route: 058
     Dates: start: 20230710, end: 20231012
  2. COSENTYX [Suspect]
     Active Substance: SECUKINUMAB
     Indication: Psoriatic arthropathy

REACTIONS (5)
  - Dehydration [None]
  - Hypotension [None]
  - Colitis ulcerative [None]
  - Infusion related reaction [None]
  - Therapy change [None]

NARRATIVE: CASE EVENT DATE: 20231012
